FAERS Safety Report 5960928-8 (Version None)
Quarter: 2008Q4

REPORT INFORMATION
  Report Type: 
  Country: None (occurrence: None)
  Receive Date: 20081121
  Receipt Date: 20081117
  Transmission Date: 20090506
  Serious: Yes (Life-Threatening, Hospitalization)
  Sender: FDA-Public Use
  Company Number: ES-JNJFOC-20081104468

PATIENT
  Age: 60 Year
  Sex: Female

DRUGS (5)
  1. RISPERDAL [Suspect]
     Indication: POLYDIPSIA PSYCHOGENIC
     Route: 048
  2. RISPERDAL [Suspect]
     Indication: BIPOLAR DISORDER
     Route: 048
  3. LORAZEPAM [Interacting]
     Indication: BIPOLAR DISORDER
     Route: 048
  4. AKINETON [Interacting]
     Indication: BIPOLAR DISORDER
     Route: 048
  5. INDAPAMIDE [Interacting]
     Indication: DRUG USE FOR UNKNOWN INDICATION
     Route: 048

REACTIONS (4)
  - COMA [None]
  - DRUG INTERACTION [None]
  - HYPONATRAEMIA [None]
  - THIRST [None]
